FAERS Safety Report 4603653-8 (Version None)
Quarter: 2005Q1

REPORT INFORMATION
  Report Type: 
  Country: None (occurrence: None)
  Receive Date: 20050308
  Receipt Date: 20050223
  Transmission Date: 20050727
  Serious: Yes (Other)
  Sender: FDA-Public Use
  Company Number: 2005037491

PATIENT
  Age: 72 Year
  Sex: Male

DRUGS (2)
  1. METHYLPREDNISOLONE [Suspect]
     Indication: ACUTE RESPIRATORY DISTRESS SYNDROME
     Dosage: 1 GRAM 1 IN 1 D
  2. INSULIN [Concomitant]

REACTIONS (25)
  - ABDOMINAL PAIN UPPER [None]
  - ACETABULUM FRACTURE [None]
  - ACUTE MYOCARDIAL INFARCTION [None]
  - ACUTE RESPIRATORY DISTRESS SYNDROME [None]
  - ALANINE AMINOTRANSFERASE INCREASED [None]
  - ANAEMIA [None]
  - ASCITES [None]
  - ASPARTATE AMINOTRANSFERASE INCREASED [None]
  - BLOOD GLUCOSE INCREASED [None]
  - CHOLECYSTITIS ACUTE [None]
  - CHOLECYSTITIS INFECTIVE [None]
  - CITROBACTER INFECTION [None]
  - FALL [None]
  - FRACTURED ISCHIUM [None]
  - GALLBLADDER DISORDER [None]
  - GALLBLADDER ENLARGEMENT [None]
  - GALLBLADDER PERFORATION [None]
  - GAMMA-GLUTAMYLTRANSFERASE INCREASED [None]
  - ILIUM FRACTURE [None]
  - PELVIC FRACTURE [None]
  - PERITONITIS [None]
  - PUBIC RAMI FRACTURE [None]
  - RETROPERITONEAL HAEMATOMA [None]
  - STAPHYLOCOCCAL INFECTION [None]
  - ULTRASONIC ANGIOGRAM ABNORMAL [None]
